FAERS Safety Report 9655882 (Version 3)
Quarter: 2013Q4

REPORT INFORMATION
  Report Type: Spontaneous
  Country: US (occurrence: US)
  Receive Date: 20131030
  Receipt Date: 20131204
  Transmission Date: 20140711
  Serious: Yes (Other)
  Sender: FDA-Public Use
  Company Number: US-AMGEN-USASP2013075186

PATIENT
  Age: 80 Year
  Sex: Female

DRUGS (3)
  1. PROLIA [Suspect]
     Indication: OSTEOPOROSIS POSTMENOPAUSAL
     Dosage: UNK
     Route: 065
     Dates: start: 20130907
  2. CALTRATE                           /00944201/ [Concomitant]
  3. VITAMIN D                          /00107901/ [Concomitant]

REACTIONS (13)
  - Depression [Unknown]
  - Skin disorder [Unknown]
  - Abdominal discomfort [Unknown]
  - Photosensitivity reaction [Unknown]
  - Adverse event [Unknown]
  - Skin odour abnormal [Unknown]
  - Gastrointestinal sounds abnormal [Unknown]
  - Tinnitus [Unknown]
  - Contusion [Unknown]
  - Asthenia [Unknown]
  - Fatigue [Unknown]
  - Dermatitis [Unknown]
  - Drug hypersensitivity [Unknown]
